FAERS Safety Report 23946240 (Version 2)
Quarter: 2024Q3

REPORT INFORMATION
  Report Type: Spontaneous
  Country: CH (occurrence: CH)
  Receive Date: 20240606
  Receipt Date: 20240708
  Transmission Date: 20241016
  Serious: Yes (Disabling)
  Sender: NOVARTIS
  Company Number: CH-002147023-NVSC2024CH061309

PATIENT
  Age: 31 Year
  Sex: Male

DRUGS (2)
  1. COSENTYX [Suspect]
     Active Substance: SECUKINUMAB
     Indication: Palmoplantar pustulosis
     Dosage: 150 MG, QMO (WEEK 0, WEEK 1, WEEK 2, WEEK 3, WEEK 4, THEN  ONCE A MONTH)
     Route: 058
     Dates: start: 20230130, end: 20230929
  2. COSENTYX [Suspect]
     Active Substance: SECUKINUMAB
     Indication: Psoriatic arthropathy

REACTIONS (5)
  - Anal fissure [Recovered/Resolved]
  - Mouth ulceration [Recovered/Resolved]
  - Folliculitis [Recovered/Resolved]
  - Pain [Unknown]
  - Ear infection [Recovered/Resolved]
